FAERS Safety Report 8227466-3 (Version None)
Quarter: 2012Q1

REPORT INFORMATION
  Report Type: 
  Country: None (occurrence: None)
  Receive Date: 20120322
  Receipt Date: 20120312
  Transmission Date: 20120608
  Serious: Yes (Other)
  Sender: FDA-Public Use
  Company Number: DE-AMGEN-DEUSP2012016828

PATIENT
  Age: 55 Year
  Sex: Female

DRUGS (4)
  1. AVELOX [Concomitant]
     Dosage: UNK
  2. ENBREL [Suspect]
     Indication: RHEUMATOID ARTHRITIS
     Dosage: 50 MG, WEEKLY
     Dates: start: 20100913
  3. TORASEMIDE [Concomitant]
     Dosage: 10 MG, UNK
  4. SPIRO COMP. [Concomitant]
     Dosage: UNK

REACTIONS (2)
  - PNEUMONIA [None]
  - NAUSEA [None]
